FAERS Safety Report 21278487 (Version 1)
Quarter: 2022Q3

REPORT INFORMATION
  Report Type: Spontaneous
  Country: FR (occurrence: FR)
  Receive Date: 20220831
  Receipt Date: 20220831
  Transmission Date: 20221026
  Serious: Yes (Other)
  Sender: FDA-Public Use
  Company Number: FR-GILEAD-2022-0595791

PATIENT
  Sex: Female

DRUGS (6)
  1. BIKTARVY [Suspect]
     Active Substance: BICTEGRAVIR SODIUM\EMTRICITABINE\TENOFOVIR ALAFENAMIDE FUMARATE
     Indication: HIV infection
     Dosage: UNK
     Route: 064
     Dates: start: 20220518, end: 20220627
  2. EMTRICITABINE\RILPIVIRINE\TENOFOVIR DISOPROXIL FUMARATE [Suspect]
     Active Substance: EMTRICITABINE\RILPIVIRINE\TENOFOVIR DISOPROXIL FUMARATE
     Indication: HIV infection
     Dosage: UNK
     Route: 064
     Dates: start: 20220517, end: 20220518
  3. RETROVIR [Concomitant]
     Active Substance: ZIDOVUDINE
     Dosage: UNK
     Dates: start: 20220627, end: 20220627
  4. ZIDOVUDINE [Concomitant]
     Active Substance: ZIDOVUDINE
  5. LAMIVUDINE [Concomitant]
     Active Substance: LAMIVUDINE
  6. NEVIRAPINE [Concomitant]
     Active Substance: NEVIRAPINE

REACTIONS (2)
  - Neonatal respiratory distress [Unknown]
  - Foetal exposure during pregnancy [Recovered/Resolved]

NARRATIVE: CASE EVENT DATE: 20220517
